FAERS Safety Report 7556460-0 (Version None)
Quarter: 2011Q2

REPORT INFORMATION
  Report Type: 
  Country: None (occurrence: None)
  Receive Date: 20110615
  Receipt Date: 20110615
  Transmission Date: 20111010
  Serious: Yes (Death)
  Sender: FDA-Public Use
  Company Number: None

PATIENT
  Age: 22 Year
  Sex: Female

DRUGS (1)
  1. TERBUTALINE [Suspect]
     Indication: UTERINE CONTRACTIONS DURING PREGNANCY
     Dosage: 0.25 MG ONCE SQ    1 DOSE
     Route: 058
     Dates: start: 20110124, end: 20110124

REACTIONS (1)
  - RESPIRATORY ARREST [None]
